FAERS Safety Report 5285779-1 (Version None)
Quarter: 2007Q1

REPORT INFORMATION
  Report Type: 
  Country: None (occurrence: None)
  Receive Date: 20070126
  Receipt Date: 20061116
  Transmission Date: 20070707
  Serious: No
  Sender: FDA-Public Use
  Company Number: 2006CT000996

PATIENT
  Age: 16 Year
  Sex: Female
  Weight: 48.5349 kg

DRUGS (5)
  1. VENTAVIS [Suspect]
     Indication: PULMONARY HYPERTENSION
     Dosage: 5 UG;6TO9X/DAY;INH
     Route: 055
     Dates: start: 20060421
  2. ASPIRIN [Concomitant]
  3. SILDENAFIL CITRATE [Concomitant]
  4. TRACLEER [Concomitant]
  5. OXYGEN [Concomitant]

REACTIONS (3)
  - EPISTAXIS [None]
  - HEADACHE [None]
  - NAUSEA [None]
